FAERS Safety Report 4294496-6 (Version None)
Quarter: 2004Q1

REPORT INFORMATION
  Report Type: 
  Country: None (occurrence: None)
  Receive Date: 20040211
  Receipt Date: 20040128
  Transmission Date: 20041129
  Serious: No
  Sender: FDA-Public Use
  Company Number: None

PATIENT
  Age: 71 Year
  Sex: Male

DRUGS (1)
  1. LIDOCAINE HCL JELLY USP IMS, LIMITED [Suspect]
     Indication: CYSTOSCOPY
     Dosage: 10 MG/2% LIDOCAINE
     Route: 061
     Dates: start: 20040103

REACTIONS (1)
  - ANAPHYLACTIC REACTION [None]
